FAERS Safety Report 9068705 (Version 1)
Quarter: 2013Q1

REPORT INFORMATION
  Report Type: Spontaneous
  Country: US (occurrence: US)
  Receive Date: 20130215
  Receipt Date: 20130215
  Transmission Date: 20140127
  Serious: Yes (Life-Threatening, Hospitalization)
  Sender: FDA-Public Use
  Company Number: US-009507513-1302USA003273

PATIENT
  Age: 49 Year
  Sex: Female

DRUGS (5)
  1. RIBAVIRIN [Suspect]
     Indication: HEPATITIS C
     Dosage: 400 MG, BID
     Route: 048
  2. RIBAVIRIN [Suspect]
     Dosage: 1200 MG, DAILY
  3. PEGINTERFERON ALFA-2A [Suspect]
     Indication: HEPATITIS C
     Dosage: 180 MICROGRAM, QW
  4. PEGINTERFERON ALFA-2A [Suspect]
     Dosage: 180 MICROGRAM, QW
  5. PEGINTERFERON ALFA-2A [Suspect]
     Dosage: 135 MICROGRAM, QW

REACTIONS (3)
  - Transplant failure [Recovered/Resolved]
  - Hepatitis cholestatic [Unknown]
  - Drug ineffective [Unknown]
